FAERS Safety Report 6785865-0 (Version None)
Quarter: 2010Q2

REPORT INFORMATION
  Report Type: 
  Country: None (occurrence: None)
  Receive Date: 20100623
  Receipt Date: 20100608
  Transmission Date: 20101027
  Serious: Yes (Other)
  Sender: FDA-Public Use
  Company Number: JP-PFIZER INC-2010058289

PATIENT
  Sex: Male

DRUGS (6)
  1. NORPACE [Suspect]
     Dosage: 50 MG, 3X/DAY
     Route: 048
  2. ASPIRIN [Concomitant]
     Route: 048
  3. BAYMYCARD [Concomitant]
     Route: 048
  4. ADETPHOS [Concomitant]
     Route: 048
  5. SELBEX [Concomitant]
     Route: 048
  6. DEPAS [Concomitant]
     Route: 048

REACTIONS (1)
  - VISUAL FIELD DEFECT [None]
